FAERS Safety Report 20299807 (Version 1)
Quarter: 2022Q1

REPORT INFORMATION
  Report Type: Spontaneous
  Country: US (occurrence: US)
  Receive Date: 20220105
  Receipt Date: 20220105
  Transmission Date: 20220423
  Serious: No
  Sender: FDA-Public Use
  Company Number: US-SIGMAPHARM LABORATORIES, LLC-2021SIG00035

PATIENT
  Age: 46 Year
  Sex: Female
  Weight: 108.84 kg

DRUGS (13)
  1. LIOTHYRONINE SODIUM [Suspect]
     Active Substance: LIOTHYRONINE SODIUM
     Indication: Hypothyroidism
     Dosage: 25 ?G, 3X/DAY
     Route: 048
     Dates: start: 20210715, end: 202107
  2. LIOTHYRONINE SODIUM [Suspect]
     Active Substance: LIOTHYRONINE SODIUM
     Dosage: 12.5 ?G, 3X/DAY
     Route: 048
     Dates: start: 202107, end: 202107
  3. LIOTHYRONINE SODIUM [Suspect]
     Active Substance: LIOTHYRONINE SODIUM
     Dosage: HALF OF THE 25 PLUS A TINY LITTLE PIECE
     Route: 048
     Dates: start: 202107, end: 202107
  4. LIOTHYRONINE SODIUM [Suspect]
     Active Substance: LIOTHYRONINE SODIUM
     Dosage: ALMOST THE WHOLE THING, 3X/DAY
     Route: 048
     Dates: start: 202107, end: 202107
  5. LIOTHYRONINE SODIUM [Suspect]
     Active Substance: LIOTHYRONINE SODIUM
     Dosage: UNK, 3X/DAY
     Route: 048
     Dates: start: 20210727, end: 20210727
  6. LIOTHYRONINE SODIUM [Suspect]
     Active Substance: LIOTHYRONINE SODIUM
     Dosage: 15 ?G
     Route: 048
     Dates: end: 202107
  7. LIOTHYRONINE SODIUM [Suspect]
     Active Substance: LIOTHYRONINE SODIUM
     Dosage: ^HALF OF A 25 PLUS A FIVE^
     Route: 048
     Dates: start: 202107, end: 202107
  8. LIOTHYRONINE SODIUM [Suspect]
     Active Substance: LIOTHYRONINE SODIUM
     Dosage: UNK
     Route: 048
     Dates: start: 20210728
  9. COMPOUNDED PORCINE [Concomitant]
  10. ACETAMINOPHEN\HYDROCODONE [Concomitant]
     Active Substance: ACETAMINOPHEN\HYDROCODONE
  11. VITAMIN D3 [Concomitant]
     Active Substance: CHOLECALCIFEROL
  12. PROBIOTICS NOS [Concomitant]
     Active Substance: PROBIOTICS NOS
  13. CYANOCOBALAMIN\DEXPANTHENOL\NIACINAMIDE\PYRIDOXINE HYDROCHLORIDE\RIBOF [Concomitant]
     Active Substance: CYANOCOBALAMIN\DEXPANTHENOL\NIACINAMIDE\PYRIDOXINE HYDROCHLORIDE\RIBOFLAVIN 5^-PHOSPHATE SODIUM\THIA

REACTIONS (5)
  - Therapeutic product effect decreased [Recovered/Resolved]
  - Fatigue [Recovered/Resolved]
  - Headache [Recovered/Resolved]
  - Migraine [Recovered/Resolved]
  - Product physical consistency issue [Recovered/Resolved]

NARRATIVE: CASE EVENT DATE: 20210715
